FAERS Safety Report 8052867-6 (Version None)
Quarter: 2012Q1

REPORT INFORMATION
  Report Type: 
  Country: None (occurrence: None)
  Receive Date: 20120117
  Receipt Date: 20120117
  Transmission Date: 20120608
  Serious: Yes (Hospitalization)
  Sender: FDA-Public Use
  Company Number: None

PATIENT
  Sex: Male
  Weight: 119 kg

DRUGS (6)
  1. LEUCOVORIN CALCIUM [Suspect]
     Dosage: 440 MG
     Dates: end: 20111221
  2. ELOXATIN [Suspect]
     Dosage: 187 MG
     Dates: end: 20111221
  3. FLUOROURACIL [Suspect]
     Dosage: 6160 MG  IV BOLUS 880MG IV CONTINUOUS INFUSION X 46 HOURS 5280MG
     Route: 040
     Dates: end: 20111221
  4. TAMSULOSIN HCL [Concomitant]
  5. BEVACIZUMAB (RHUMAB VEGF) [Suspect]
     Dosage: 590 MG
     Dates: end: 20111221
  6. ALPRAZOLAM [Concomitant]

REACTIONS (2)
  - URINARY RETENTION [None]
  - LOWER GASTROINTESTINAL HAEMORRHAGE [None]
